FAERS Safety Report 6691730-X (Version None)
Quarter: 2010Q2

REPORT INFORMATION
  Report Type: 
  Country: None (occurrence: None)
  Receive Date: 20100422
  Receipt Date: 20090915
  Transmission Date: 20101027
  Serious: No
  Sender: FDA-Public Use
  Company Number: US-ASTRAZENECA-2009SE13924

PATIENT
  Age: 44 Year
  Sex: Male
  Weight: 95.3 kg

DRUGS (1)
  1. TOPROL-XL [Suspect]
     Route: 048
     Dates: start: 20090801

REACTIONS (1)
  - DYSPEPSIA [None]
